FAERS Safety Report 14661822 (Version 2)
Quarter: 2018Q2

REPORT INFORMATION
  Report Type: Report from Study
  Country: CN (occurrence: CN)
  Receive Date: 20180320
  Receipt Date: 20180413
  Transmission Date: 20180711
  Serious: Yes (Death)
  Sender: FDA-Public Use
  Company Number: CN-INCYTE CORPORATION-2018IN002645

PATIENT

DRUGS (1)
  1. JAKAVI [Suspect]
     Active Substance: RUXOLITINIB
     Indication: PRIMARY MYELOFIBROSIS
     Dosage: 10 MG, BID
     Dates: start: 20171212

REACTIONS (6)
  - Rebound effect [Unknown]
  - Splenomegaly [Unknown]
  - Bone pain [Unknown]
  - Nasopharyngitis [Recovered/Resolved]
  - Death [Fatal]
  - Haemoptysis [Unknown]

NARRATIVE: CASE EVENT DATE: 201712
